FAERS Safety Report 4609891-2 (Version None)
Quarter: 2005Q1

REPORT INFORMATION
  Report Type: 
  Country: None (occurrence: None)
  Receive Date: 20050314
  Receipt Date: 20050314
  Transmission Date: 20050727
  Serious: Yes (Hospitalization)
  Sender: FDA-Public Use
  Company Number: None

PATIENT
  Age: 83 Year
  Sex: Male

DRUGS (7)
  1. WARFARIN SODIUM [Suspect]
     Indication: ATRIAL FIBRILLATION
     Dosage: 5MC QD WADDITIONAL 2.5MB ON MWF
     Dates: start: 20000601
  2. AMOXICILLIN [Suspect]
     Indication: INFECTION
  3. METOPROLOL TARTRATE [Concomitant]
  4. ALLOPURINOL [Concomitant]
  5. FUROSEMIDE [Concomitant]
  6. ZOLOFT [Concomitant]
  7. ZOCOR [Concomitant]

REACTIONS (1)
  - CONTUSION [None]
